FAERS Safety Report 7131318-X (Version None)
Quarter: 2010Q4

REPORT INFORMATION
  Report Type: 
  Country: None (occurrence: None)
  Receive Date: 20101124
  Receipt Date: 20101124
  Transmission Date: 20110411
  Serious: Yes (Hospitalization)
  Sender: FDA-Public Use
  Company Number: None

PATIENT
  Sex: Male
  Weight: 73.9 kg

DRUGS (4)
  1. FLUOROURACIL [Suspect]
     Dosage: 3505 MG
     Dates: end: 20101115
  2. BEVACIZUMAB (RHUMAB VEGF) [Suspect]
     Dosage: 369 MG
     Dates: end: 20101115
  3. LEUCOVORIN CALCIUM [Suspect]
     Dosage: 748 MG
     Dates: end: 20101115
  4. ELOXATIN [Suspect]
     Dosage: 94 MG
     Dates: end: 20101115

REACTIONS (2)
  - GASTROINTESTINAL NECROSIS [None]
  - LARGE INTESTINE PERFORATION [None]
